FAERS Safety Report 5077515-9 (Version None)
Quarter: 2006Q3

REPORT INFORMATION
  Report Type: 
  Country: None (occurrence: None)
  Receive Date: 20060810
  Receipt Date: 20060322
  Transmission Date: 20061208
  Serious: No
  Sender: FDA-Public Use
  Company Number: US-GLAXOSMITHKLINE-A0598611A

PATIENT
  Sex: Male

DRUGS (7)
  1. PAROXETINE HCL [Suspect]
     Indication: DEPRESSION
     Dosage: 20MG PER DAY
     Route: 048
  2. AMARYL [Concomitant]
  3. ACTOS [Concomitant]
  4. ENALAPRIL MALEATE [Concomitant]
  5. AMITRIPTYLINE HCL [Concomitant]
  6. ALPRAZOLAM [Concomitant]
  7. AMBIEN [Concomitant]

REACTIONS (2)
  - ANXIETY [None]
  - TREMOR [None]
